FAERS Safety Report 23183617 (Version 1)
Quarter: 2023Q4

REPORT INFORMATION
  Report Type: Spontaneous
  Country: US (occurrence: US)
  Receive Date: 20231114
  Receipt Date: 20231114
  Transmission Date: 20240109
  Serious: Yes (Other)
  Sender: FDA-Public Use
  Company Number: US-PFIZER INC-202300356945

PATIENT
  Age: 82 Year
  Sex: Female

DRUGS (1)
  1. IBRANCE [Suspect]
     Active Substance: PALBOCICLIB
     Dosage: 75 MG, CYCLIC (1 TABLET DAILY ON DAYS 1 THROUGH 21 THEN 7 DAYS OFF)
     Dates: start: 20210522

REACTIONS (4)
  - White blood cell count decreased [Recovering/Resolving]
  - Oesophageal pain [Recovering/Resolving]
  - COVID-19 [Recovering/Resolving]
  - Cough [Recovering/Resolving]
